FAERS Safety Report 8995858 (Version 1)
Quarter: 2013Q1

REPORT INFORMATION
  Report Type: Spontaneous
  Country: US (occurrence: US)
  Receive Date: 20130103
  Receipt Date: 20130103
  Transmission Date: 20140127
  Serious: Yes (Other)
  Sender: FDA-Public Use
  Company Number: US-BAXTER-2013BAX000059

PATIENT
  Sex: Female

DRUGS (2)
  1. TISSEEL VH [Suspect]
     Indication: NEUROSURGERY
     Route: 065
     Dates: start: 20100624, end: 20100624
  2. TISSEEL VH [Suspect]
     Indication: OFF LABEL USE

REACTIONS (5)
  - Injury [Unknown]
  - Pain [None]
  - Unevaluable event [None]
  - Anhedonia [None]
  - Activities of daily living impaired [None]
